FAERS Safety Report 6418747-4 (Version None)
Quarter: 2009Q4

REPORT INFORMATION
  Report Type: 
  Country: None (occurrence: None)
  Receive Date: 20091026
  Receipt Date: 20091019
  Transmission Date: 20100525
  Serious: Yes (Life-Threatening, Hospitalization)
  Sender: FDA-Public Use
  Company Number: 2009SP002776

PATIENT
  Age: 43 Year
  Sex: Female

DRUGS (4)
  1. LUNESTA [Suspect]
     Dosage: ORAL
     Route: 048
     Dates: start: 20090908
  2. ACETAMINOPHEN [Suspect]
     Dates: start: 20090915
  3. CON MEDS [Concomitant]
  4. PREV MEDS [Concomitant]

REACTIONS (5)
  - BRADYPHRENIA [None]
  - INTENTIONAL OVERDOSE [None]
  - LIVER INJURY [None]
  - RESPIRATORY ARREST [None]
  - SOMNOLENCE [None]
